FAERS Safety Report 4519492-2 (Version None)
Quarter: 2004Q4

REPORT INFORMATION
  Report Type: 
  Country: None (occurrence: None)
  Receive Date: 20041101
  Receipt Date: 20031027
  Transmission Date: 20050328
  Serious: Yes (Other)
  Sender: FDA-Public Use
  Company Number: HQWYE482709DEC03

PATIENT
  Age: 72 Year
  Sex: Female
  Weight: 52.21 kg

DRUGS (2)
  1. PREMARIN [Suspect]
     Indication: OESTROGEN REPLACEMENT THERAPY
     Dosage: 2.5 MG OR 1 X 2.5 MG AS NEEDED, ORAL; 0.625 MG DAILY,  ORAL; MANY YEARS
     Route: 048
     Dates: start: 19700101
  2. LOTENSIN [Concomitant]

REACTIONS (1)
  - FEELING HOT [None]
